FAERS Safety Report 5134595-X (Version None)
Quarter: 2006Q4

REPORT INFORMATION
  Report Type: 
  Country: None (occurrence: None)
  Receive Date: 20061025
  Receipt Date: 20060913
  Transmission Date: 20070319
  Serious: Yes (Other)
  Sender: FDA-Public Use
  Company Number: US-GLAXOSMITHKLINE-A0620041A

PATIENT
  Age: 58 Year
  Sex: Female

DRUGS (6)
  1. REQUIP [Suspect]
     Indication: PARKINSON'S DISEASE
     Dosage: 4MG THREE TIMES PER DAY
     Route: 048
     Dates: start: 20051201
  2. COENZYME Q10 [Concomitant]
     Dosage: 1200MG PER DAY
     Route: 048
  3. FISH OIL [Concomitant]
     Dosage: 1000MG PER DAY
     Route: 048
  4. ASCORBIC ACID [Concomitant]
     Dosage: 1000MG PER DAY
     Route: 048
  5. MULTI-VITAMIN [Concomitant]
     Route: 048
  6. CALCIUM GLUCONATE [Concomitant]
     Dosage: 1500MG PER DAY
     Route: 048

REACTIONS (3)
  - COUGH [None]
  - PLEURAL FIBROSIS [None]
  - PULMONARY FIBROSIS [None]
